FAERS Safety Report 18174952 (Version 1)
Quarter: 2020Q3

REPORT INFORMATION
  Report Type: Spontaneous
  Country: US (occurrence: US)
  Receive Date: 20200820
  Receipt Date: 20200820
  Transmission Date: 20201103
  Serious: Yes (Death)
  Sender: FDA-Public Use
  Company Number: None

PATIENT
  Age: 49 Year
  Sex: Female
  Weight: 65.25 kg

DRUGS (4)
  1. MYCOPHENOLATE [Suspect]
     Active Substance: MYCOPHENOLIC ACID
     Indication: RENAL TRANSPLANT
     Route: 048
     Dates: start: 20200210, end: 20200802
  2. MYCOPHENOLATE 250MG [Concomitant]
     Active Substance: MYCOPHENOLIC ACID
     Dates: start: 20200210, end: 20200802
  3. ENVARSUS XR [Concomitant]
     Active Substance: TACROLIMUS
     Dates: start: 20200210, end: 20200802
  4. ENVARSUS XR [Suspect]
     Active Substance: TACROLIMUS
     Indication: RENAL TRANSPLANT
     Route: 048
     Dates: start: 20200210, end: 20200802

REACTIONS (1)
  - Death [None]

NARRATIVE: CASE EVENT DATE: 20200802
